FAERS Safety Report 14962124 (Version 1)
Quarter: 2018Q2

REPORT INFORMATION
  Report Type: Spontaneous
  Country: CL (occurrence: CL)
  Receive Date: 20180601
  Receipt Date: 20180601
  Transmission Date: 20180711
  Serious: Yes (Other)
  Sender: FDA-Public Use
  Company Number: CL-MERCK KGAA-2048839

PATIENT
  Sex: Female

DRUGS (1)
  1. NOVOTHYROX [Suspect]
     Active Substance: LEVOTHYROXINE SODIUM
     Indication: THYROID DISORDER
     Dates: start: 2018

REACTIONS (6)
  - Malaise [None]
  - Depression [None]
  - Fatigue [None]
  - Asthma [None]
  - Hypertension [None]
  - Arrhythmia [None]

NARRATIVE: CASE EVENT DATE: 2018
